FAERS Safety Report 6257103-9 (Version None)
Quarter: 2009Q3

REPORT INFORMATION
  Report Type: 
  Country: None (occurrence: None)
  Receive Date: 20090706
  Receipt Date: 20090622
  Transmission Date: 20100115
  Serious: Yes (Life-Threatening)
  Sender: FDA-Public Use
  Company Number: B0581048A

PATIENT
  Age: 74 Year
  Sex: Female

DRUGS (6)
  1. AUGMENTIN '125' [Suspect]
     Indication: CELLULITIS
     Dosage: 1G THREE TIMES PER DAY
     Route: 042
     Dates: start: 20090314, end: 20090319
  2. NOLOTIL [Suspect]
     Indication: PAIN
     Dosage: 3G TWICE PER DAY
     Route: 042
     Dates: start: 20090314, end: 20090316
  3. ACYCLOVIR [Suspect]
     Indication: HERPES SIMPLEX
     Dosage: 200MG SIX TIMES PER DAY
     Route: 048
     Dates: start: 20090316, end: 20090323
  4. TAZOCEL [Concomitant]
     Indication: CELLULITIS
     Dosage: 4G THREE TIMES PER DAY
     Route: 042
     Dates: start: 20090314
  5. OMEPRAZOL [Concomitant]
     Indication: PROPHYLAXIS
     Dosage: 20MG PER DAY
     Route: 048
  6. PARACETAMOL [Concomitant]
     Indication: DRUG USE FOR UNKNOWN INDICATION
     Dosage: 3G PER DAY
     Route: 042
     Dates: start: 20090314

REACTIONS (2)
  - ANAEMIA [None]
  - THROMBOCYTOPENIA [None]
